FAERS Safety Report 7644190-6 (Version None)
Quarter: 2011Q3

REPORT INFORMATION
  Report Type: 
  Country: None (occurrence: None)
  Receive Date: 20110729
  Receipt Date: 20110720
  Transmission Date: 20111222
  Serious: Yes (Hospitalization)
  Sender: FDA-Public Use
  Company Number: ZA-ABBOTT-11P-143-0840933-00

PATIENT
  Sex: Female

DRUGS (7)
  1. HUMIRA [Suspect]
     Indication: RHEUMATOID ARTHRITIS
     Route: 058
     Dates: start: 20100101, end: 20110215
  2. HUMIRA [Suspect]
     Dates: start: 20110405
  3. ARCOXIA [Concomitant]
     Indication: PAIN
     Route: 048
     Dates: start: 20110308
  4. ARCOXIA [Concomitant]
     Indication: INFLAMMATION
  5. OSTEOBON [Concomitant]
     Indication: OSTEOPOROSIS
     Route: 048
  6. DAPAMAX [Concomitant]
     Indication: HYPERTENSION
     Dosage: IN THE MORNING
     Route: 048
     Dates: start: 20080101
  7. METHOTREXATE [Concomitant]
     Indication: RHEUMATOID ARTHRITIS
     Route: 048

REACTIONS (10)
  - INJECTION SITE PRURITUS [None]
  - HEADACHE [None]
  - INJECTION SITE REACTION [None]
  - INJECTION SITE SWELLING [None]
  - DRY SKIN [None]
  - INTERVERTEBRAL DISC DEGENERATION [None]
  - ERYTHEMA OF EYELID [None]
  - NOCTURIA [None]
  - BACK DISORDER [None]
  - BLEPHARITIS [None]
